FAERS Safety Report 10927218 (Version 2)
Quarter: 2015Q1

REPORT INFORMATION
  Report Type: Spontaneous
  Country: DE (occurrence: DE)
  Receive Date: 20150318
  Receipt Date: 20150330
  Transmission Date: 20150721
  Serious: Yes (Death)
  Sender: FDA-Public Use
  Company Number: DE-B.I. PHARMACEUTICALS,INC./RIDGEFIELD-2015-BI-14041DE

PATIENT
  Age: 72 Year
  Sex: Female
  Weight: 43 kg

DRUGS (12)
  1. PANTOPROZOL [Concomitant]
     Indication: PRODUCT USED FOR UNKNOWN INDICATION
     Route: 065
     Dates: end: 20150224
  2. TAMBOCUR [Concomitant]
     Indication: ARRHYTHMIA
     Dosage: 220 MG
     Route: 048
     Dates: start: 2002, end: 20150224
  3. WHITETHORN (CRATAEGUS) [Concomitant]
     Indication: ARRHYTHMIA
     Dosage: 900 MG
     Route: 048
     Dates: start: 2000, end: 20150224
  4. METOPROLOL [Concomitant]
     Active Substance: METOPROLOL
     Indication: PRODUCT USED FOR UNKNOWN INDICATION
     Route: 065
     Dates: end: 20150224
  5. AMITRIPTYLIN [Concomitant]
     Active Substance: AMITRIPTYLINE
     Indication: PAIN
  6. RAMIPRIL. [Concomitant]
     Active Substance: RAMIPRIL
     Indication: CARDIAC FAILURE
     Route: 048
  7. CONCOR [Concomitant]
     Active Substance: BISOPROLOL FUMARATE
     Indication: PRODUCT USED FOR UNKNOWN INDICATION
     Route: 065
  8. BISOPROLOL [Concomitant]
     Active Substance: BISOPROLOL
     Indication: PRODUCT USED FOR UNKNOWN INDICATION
     Route: 065
     Dates: end: 20150224
  9. PRADAXA [Suspect]
     Active Substance: DABIGATRAN ETEXILATE MESYLATE
     Indication: ATRIAL FIBRILLATION
     Route: 048
  10. PRADAXA [Suspect]
     Active Substance: DABIGATRAN ETEXILATE MESYLATE
     Indication: CEREBROVASCULAR ACCIDENT
     Dosage: 220 MG
     Route: 048
     Dates: start: 20120410, end: 20150105
  11. AMITRIPTYLIN [Concomitant]
     Active Substance: AMITRIPTYLINE
     Indication: DEPRESSION
     Dosage: 25 MG
     Route: 048
     Dates: start: 2009, end: 20150224
  12. AMITRIPTYLIN [Concomitant]
     Active Substance: AMITRIPTYLINE
     Indication: WEIGHT DECREASED

REACTIONS (17)
  - Coma hepatic [Fatal]
  - Ascites [Unknown]
  - Ventilation perfusion mismatch [Unknown]
  - Abdominal pain [Unknown]
  - Ocular icterus [Unknown]
  - Hepatomegaly [Unknown]
  - Hepatic cirrhosis [Fatal]
  - Liver injury [Unknown]
  - Liver disorder [Unknown]
  - Varices oesophageal [Unknown]
  - Hypertension [Unknown]
  - Back pain [Unknown]
  - Jaundice [Unknown]
  - Decreased appetite [Unknown]
  - Liver disorder [Fatal]
  - Atrial septal defect [Unknown]
  - General physical health deterioration [Unknown]

NARRATIVE: CASE EVENT DATE: 201411
